FAERS Safety Report 4727100-0 (Version None)
Quarter: 2005Q3

REPORT INFORMATION
  Report Type: 
  Country: None (occurrence: None)
  Receive Date: 20050726
  Receipt Date: 20050712
  Transmission Date: 20060218
  Serious: Yes (Other)
  Sender: FDA-Public Use
  Company Number: 200512240BCC

PATIENT
  Age: 81 Year
  Sex: Male
  Weight: 89.8122 kg

DRUGS (5)
  1. ORIGINAL ALKA SELTZER [Suspect]
     Indication: DYSPEPSIA
     Dosage: 325 - 650MG, QD, ORAL/ A FEW WEEKS
     Route: 048
  2. ASPIRIN [Suspect]
     Indication: DYSPEPSIA
     Dosage: 81 MG, QD, ORAL
     Route: 048
     Dates: start: 20050101
  3. PLAVIX [Concomitant]
  4. SLEEP AID [Concomitant]
  5. ANTI-ANXIETY [Concomitant]

REACTIONS (5)
  - CONDITION AGGRAVATED [None]
  - DIVERTICULITIS [None]
  - DYSPEPSIA [None]
  - GASTRITIS [None]
  - STOMACH DISCOMFORT [None]
